FAERS Safety Report 10176333 (Version 2)
Quarter: 2014Q2

REPORT INFORMATION
  Report Type: Report from Study
  Country: CN (occurrence: CN)
  Receive Date: 20140516
  Receipt Date: 20140516
  Transmission Date: 20141212
  Serious: Yes (Other)
  Sender: FDA-Public Use
  Company Number: CN-ROCHE-1268161

PATIENT
  Age: 50 Year
  Sex: Female
  Weight: 51.5 kg

DRUGS (3)
  1. AVASTIN [Suspect]
     Indication: COLORECTAL CANCER
     Route: 042
     Dates: start: 20121025, end: 20130905
  2. XELODA [Suspect]
     Indication: RECTAL CANCER
     Route: 048
  3. OXALIPLATIN [Concomitant]
     Indication: RECTAL CANCER
     Route: 041

REACTIONS (4)
  - Neutrophil count decreased [Not Recovered/Not Resolved]
  - White blood cell count decreased [Recovering/Resolving]
  - Pharyngeal haemorrhage [Unknown]
  - Aphonia [Unknown]
